FAERS Safety Report 24106285 (Version 1)
Quarter: 2024Q3

REPORT INFORMATION
  Report Type: Spontaneous
  Country: US (occurrence: US)
  Receive Date: 20240717
  Receipt Date: 20240717
  Transmission Date: 20241016
  Serious: No
  Sender: Phathom Pharmaceuticals
  Company Number: US-PHATHOM PHARMACEUTICALS INC.-2024PHT00262

PATIENT
  Age: 77 Year
  Sex: Female
  Weight: 48.988 kg

DRUGS (4)
  1. VOQUEZNA [Suspect]
     Active Substance: VONOPRAZAN FUMARATE
     Indication: Erosive oesophagitis
     Dosage: 20 MG, 1X/DAY
     Route: 048
     Dates: start: 20240411, end: 20240424
  2. VOQUEZNA [Suspect]
     Active Substance: VONOPRAZAN FUMARATE
     Dosage: 20 MG, EVERY 48 HOURS
     Route: 048
     Dates: start: 20240425
  3. PRILOSEC [Suspect]
     Active Substance: OMEPRAZOLE MAGNESIUM
     Indication: Erosive oesophagitis
     Dosage: 20 MG, 1X/DAY IN THE MORNING
     Dates: start: 20240426
  4. PEPCID [Suspect]
     Active Substance: FAMOTIDINE
     Indication: Erosive oesophagitis
     Dosage: 40 MG, 1X/DAY IN THE AFTERNOON
     Dates: start: 20240426

REACTIONS (5)
  - Discomfort [Not Recovered/Not Resolved]
  - Drug ineffective [Not Recovered/Not Resolved]
  - Dyspepsia [Not Recovered/Not Resolved]
  - Abdominal distension [Not Recovered/Not Resolved]
  - Off label use [Not Recovered/Not Resolved]

NARRATIVE: CASE EVENT DATE: 20240425
